FAERS Safety Report 15122093 (Version 3)
Quarter: 2018Q4

REPORT INFORMATION
  Report Type: Spontaneous
  Country: US (occurrence: US)
  Receive Date: 20180709
  Receipt Date: 20181024
  Transmission Date: 20190204
  Serious: Yes (Death, Other)
  Sender: FDA-Public Use
  Company Number: US-009507513-1807USA001634

PATIENT
  Age: 71 Year
  Sex: Male

DRUGS (2)
  1. KEYTRUDA [Suspect]
     Active Substance: PEMBROLIZUMAB
     Indication: LUNG NEOPLASM MALIGNANT
     Dosage: 200 MG, UNK
     Dates: start: 20170203, end: 20180308
  2. ZOMETA [Concomitant]
     Active Substance: ZOLEDRONIC ACID

REACTIONS (6)
  - Emphysema [Fatal]
  - Respiratory failure [Unknown]
  - Adverse event [Unknown]
  - Liver disorder [Unknown]
  - Malignant neoplasm progression [Fatal]
  - Pneumonitis [Fatal]
